FAERS Safety Report 6705709-2 (Version None)
Quarter: 2010Q2

REPORT INFORMATION
  Report Type: 
  Country: None (occurrence: None)
  Receive Date: 20100503
  Receipt Date: 20100420
  Transmission Date: 20101027
  Serious: Yes (Hospitalization, Other)
  Sender: FDA-Public Use
  Company Number: US-BAYER-200928774NA

PATIENT
  Age: 43 Year
  Sex: Female
  Weight: 54 kg

DRUGS (8)
  1. YASMIN [Suspect]
     Indication: ORAL CONTRACEPTION
     Route: 048
     Dates: start: 20051201, end: 20070601
  2. YASMIN [Suspect]
     Route: 048
     Dates: start: 20071101, end: 20080401
  3. ADVAIR DISKUS 250/50 [Concomitant]
     Route: 055
  4. ZOLOFT [Concomitant]
     Dosage: TOTAL DAILY DOSE: 100 MG
     Route: 065
  5. KLONOPIN [Concomitant]
     Indication: ANXIETY
     Dosage: TWICE DAILY AS NEEDED
     Route: 065
     Dates: start: 20080101
  6. MACROBID [Concomitant]
     Route: 065
  7. PHENAZOPYRIDINE HCL TAB [Concomitant]
     Route: 065
  8. WELLBUTRIN [Concomitant]
     Indication: DEPRESSION
     Route: 065

REACTIONS (11)
  - CHEST PAIN [None]
  - DEEP VEIN THROMBOSIS [None]
  - DYSPNOEA [None]
  - LIMB DISCOMFORT [None]
  - MUSCULAR WEAKNESS [None]
  - OEDEMA [None]
  - OEDEMA PERIPHERAL [None]
  - PAIN IN EXTREMITY [None]
  - PRESYNCOPE [None]
  - PULMONARY EMBOLISM [None]
  - SKIN DISCOLOURATION [None]
